FAERS Safety Report 16613814 (Version 2)
Quarter: 2019Q3

REPORT INFORMATION
  Report Type: Report from Study
  Country: FR (occurrence: FR)
  Receive Date: 20190723
  Receipt Date: 20190801
  Transmission Date: 20191004
  Serious: Yes (Hospitalization)
  Sender: FDA-Public Use
  Company Number: FR-TAKEDA-2019TUS044458

PATIENT
  Age: 58 Year
  Sex: Male

DRUGS (4)
  1. DEXAMETHASONE. [Suspect]
     Active Substance: DEXAMETHASONE
     Indication: PLASMA CELL MYELOMA
     Dosage: 40 MILLIGRAM, UNK
     Route: 065
     Dates: start: 20190617
  2. DARATUMUMAB [Suspect]
     Active Substance: DARATUMUMAB
     Indication: PLASMA CELL MYELOMA
     Dosage: 16 MILLIGRAM, UNK
     Route: 065
     Dates: start: 20190617
  3. IXAZOMIB [Suspect]
     Active Substance: IXAZOMIB
     Indication: PLASMA CELL MYELOMA
     Dosage: 3 MILLIGRAM, UNK
     Route: 065
     Dates: start: 20190617
  4. LENALIDOMIDE [Suspect]
     Active Substance: LENALIDOMIDE
     Indication: PLASMA CELL MYELOMA
     Dosage: 25 MILLIGRAM, UNK
     Route: 065
     Dates: start: 20190617

REACTIONS (1)
  - Respiratory distress [Recovered/Resolved]

NARRATIVE: CASE EVENT DATE: 20190717
